FAERS Safety Report 24541029 (Version 1)
Quarter: 2024Q4

REPORT INFORMATION
  Report Type: Spontaneous
  Country: US (occurrence: US)
  Receive Date: 20241023
  Receipt Date: 20241023
  Transmission Date: 20250115
  Serious: No
  Sender: JUBILANT
  Company Number: US-JUBILANT CADISTA PHARMACEUTICALS INC.-2024JUB00017

PATIENT
  Age: 51 Year
  Sex: Female

DRUGS (5)
  1. PREDNISONE [Suspect]
     Active Substance: PREDNISONE
     Indication: Autoimmune disorder
     Dosage: 40 MG, 1X/DAY
     Route: 048
     Dates: start: 20240206, end: 20240207
  2. PREDNISONE [Suspect]
     Active Substance: PREDNISONE
     Indication: Viral infection
     Dosage: 30 MG, 1X/DAY
     Route: 048
     Dates: start: 20240208
  3. PREDNISONE [Suspect]
     Active Substance: PREDNISONE
     Indication: Inflammation
  4. VITAMIN D3 [Concomitant]
     Active Substance: CHOLECALCIFEROL
     Dosage: 2 DOSAGE UNITS
  5. CALTRATE [Concomitant]
     Active Substance: CALCIUM CARBONATE

REACTIONS (5)
  - Inflammation [Recovering/Resolving]
  - Joint stiffness [Recovering/Resolving]
  - Arthralgia [Recovering/Resolving]
  - Joint swelling [Recovering/Resolving]
  - Drug ineffective [Not Recovered/Not Resolved]

NARRATIVE: CASE EVENT DATE: 20240206
